FAERS Safety Report 5364711-6 (Version None)
Quarter: 2007Q2

REPORT INFORMATION
  Report Type: 
  Country: None (occurrence: None)
  Receive Date: 20070530
  Receipt Date: 20070206
  Transmission Date: 20071010
  Serious: No
  Sender: FDA-Public Use
  Company Number: 2006PV007785

PATIENT
  Age: 68 Year
  Sex: Female
  Weight: 96.1626 kg

DRUGS (6)
  1. BYETTA [Suspect]
     Dosage: 5 MCG;BID;SC; 5 MCG;QD;SC
     Route: 058
     Dates: start: 20060101, end: 20060101
  2. BYETTA [Suspect]
     Dosage: 5 MCG;BID;SC; 5 MCG;QD;SC
     Route: 058
     Dates: start: 20060117, end: 20060101
  3. BYETTA [Suspect]
     Dosage: 5 MCG;BID;SC; 5 MCG;QD;SC
     Route: 058
     Dates: start: 20060125, end: 20060101
  4. BYETTA [Suspect]
     Dosage: 5 MCG;BID;SC; 5 MCG;QD;SC
     Route: 058
     Dates: start: 20070115
  5. ACTOS [Concomitant]
  6. AMARYL [Concomitant]

REACTIONS (7)
  - BLOOD GLUCOSE DECREASED [None]
  - BLOOD GLUCOSE INCREASED [None]
  - DECREASED APPETITE [None]
  - INSOMNIA [None]
  - NAUSEA [None]
  - VOMITING [None]
  - WEIGHT DECREASED [None]
